FAERS Safety Report 5840852-1 (Version None)
Quarter: 2008Q3

REPORT INFORMATION
  Report Type: 
  Country: None (occurrence: None)
  Receive Date: 20080730
  Receipt Date: 20080612
  Transmission Date: 20090109
  Serious: Yes (Hospitalization)
  Sender: FDA-Public Use
  Company Number: PHEH2008US05238

PATIENT
  Sex: Female

DRUGS (3)
  1. TEKTURNA [Suspect]
     Indication: HYPERTENSION
     Dosage: 150 MG, BID, ORAL
     Route: 048
     Dates: start: 20080501, end: 20080609
  2. CALAN [Suspect]
     Indication: HYPERTENSION
     Dates: start: 20080501
  3. POTASSIUM (POTASSIUM) [Suspect]

REACTIONS (4)
  - DIARRHOEA [None]
  - GASTRIC DISORDER [None]
  - INSOMNIA [None]
  - MALAISE [None]
